FAERS Safety Report 4827147-X (Version None)
Quarter: 2005Q4

REPORT INFORMATION
  Report Type: 
  Country: None (occurrence: None)
  Receive Date: 20051014
  Receipt Date: 20050802
  Transmission Date: 20060501
  Serious: No
  Sender: FDA-Public Use
  Company Number: 2005SP002223

PATIENT
  Age: 47 Year
  Sex: Female
  Weight: 52.1637 kg

DRUGS (5)
  1. LUNESTA [Suspect]
     Indication: INSOMNIA
     Dosage: 3 MG;HS;ORAL
     Route: 048
     Dates: start: 20050726, end: 20050726
  2. SYNTHROID [Concomitant]
  3. MORPHINE [Concomitant]
  4. VICODIN [Concomitant]
  5. CELEBREX [Concomitant]

REACTIONS (2)
  - DYSGEUSIA [None]
  - ORAL INTAKE REDUCED [None]
